FAERS Safety Report 24397545 (Version 1)
Quarter: 2024Q4

REPORT INFORMATION
  Report Type: Spontaneous
  Country: GB (occurrence: GB)
  Receive Date: 20241004
  Receipt Date: 20241004
  Transmission Date: 20250115
  Serious: Yes (Disabling)
  Sender: TEVA
  Company Number: GB-MACLEODS PHARMA-MAC2024049450

PATIENT

DRUGS (1)
  1. LEVOFLOXACIN [Suspect]
     Active Substance: LEVOFLOXACIN
     Indication: Viral infection
     Dosage: 500 MG X 2 PER DAY, FOR 5 DAYS -10 TABLETS IN ALL
     Route: 065
     Dates: start: 202407

REACTIONS (1)
  - Tendon rupture [Not Recovered/Not Resolved]

NARRATIVE: CASE EVENT DATE: 20240823
